FAERS Safety Report 6373673-4 (Version None)
Quarter: 2009Q3

REPORT INFORMATION
  Report Type: 
  Country: None (occurrence: None)
  Receive Date: 20090924
  Receipt Date: 20090504
  Transmission Date: 20100115
  Serious: No
  Sender: FDA-Public Use
  Company Number: US-ASTRAZENECA-2009UW11347

PATIENT
  Age: 40 Year
  Sex: Female

DRUGS (12)
  1. SEROQUEL XR [Suspect]
     Route: 048
     Dates: start: 20090425, end: 20090428
  2. XANAX [Concomitant]
  3. ALBUTEROL [Concomitant]
  4. SYMBICORT [Concomitant]
     Route: 055
  5. PROZAC [Concomitant]
  6. LAMICTAL [Concomitant]
  7. METHOTREXATE [Concomitant]
  8. NUBAIN [Concomitant]
  9. PHENERGAN [Concomitant]
  10. PREDNISONE [Concomitant]
  11. TYLENOL (CAPLET) [Concomitant]
  12. CHANTIX [Concomitant]

REACTIONS (2)
  - DYSPHONIA [None]
  - TREMOR [None]
